FAERS Safety Report 5238900-5 (Version None)
Quarter: 2007Q1

REPORT INFORMATION
  Report Type: 
  Country: None (occurrence: None)
  Receive Date: 20070109
  Receipt Date: 20070129
  Transmission Date: 20070707
  Serious: Yes (Hospitalization)
  Sender: FDA-Public Use
  Company Number: 2007BI001907

PATIENT
  Age: 70 Year
  Sex: Female
  Weight: 81.6475 kg

DRUGS (8)
  1. AVONEX [Suspect]
     Indication: MULTIPLE SCLEROSIS
     Dosage: 30 UG; QW; IM
     Route: 030
     Dates: start: 20030314
  2. AVONEX [Suspect]
     Indication: MULTIPLE SCLEROSIS
     Dosage: 30 UG; QW; IM
     Route: 030
  3. AVONEX [Suspect]
     Indication: MULTIPLE SCLEROSIS
     Dosage: 30 UG; QW; IM
     Route: 030
  4. PREMARIN [Concomitant]
  5. OXYBUTYNIN [Concomitant]
  6. SYNTHROID [Concomitant]
  7. NEURONTIN [Concomitant]
  8. LYRICA [Concomitant]

REACTIONS (9)
  - BLADDER DISORDER [None]
  - CHILLS [None]
  - ERYTHEMA [None]
  - GASTROOESOPHAGEAL REFLUX DISEASE [None]
  - INFLUENZA LIKE ILLNESS [None]
  - NERVE COMPRESSION [None]
  - OEDEMA PERIPHERAL [None]
  - PROCEDURAL PAIN [None]
  - WEIGHT INCREASED [None]
